FAERS Safety Report 6702579-3 (Version None)
Quarter: 2010Q2

REPORT INFORMATION
  Report Type: 
  Country: None (occurrence: None)
  Receive Date: 20100429
  Receipt Date: 20100329
  Transmission Date: 20101027
  Serious: Yes (Hospitalization)
  Sender: FDA-Public Use
  Company Number: US-BAYER-201017430NA

PATIENT
  Sex: Male

DRUGS (2)
  1. BETASERON [Suspect]
     Indication: MULTIPLE SCLEROSIS
     Route: 058
     Dates: start: 20020101, end: 20030101
  2. TYSABRI [Concomitant]

REACTIONS (2)
  - INJECTION SITE ABSCESS [None]
  - INJECTION SITE INFECTION [None]
